FAERS Safety Report 13576112 (Version 1)
Quarter: 2017Q2

REPORT INFORMATION
  Report Type: Spontaneous
  Country: FR (occurrence: FR)
  Receive Date: 20170524
  Receipt Date: 20170524
  Transmission Date: 20170830
  Serious: Yes (Other)
  Sender: FDA-Public Use
  Company Number: FR-009507513-1705FRA008691

PATIENT
  Age: 33 Year
  Sex: Female
  Weight: 42 kg

DRUGS (8)
  1. SYMBICORT [Concomitant]
     Active Substance: BUDESONIDE\FORMOTEROL FUMARATE DIHYDRATE
     Indication: HYPERSENSITIVITY
     Dosage: UNKNOWN
  2. AERIUS [Concomitant]
     Active Substance: DESLORATADINE
     Indication: HYPERSENSITIVITY
     Dosage: UNKNOWN
  3. VENTOLIN [Concomitant]
     Active Substance: ALBUTEROL SULFATE
     Indication: HYPERSENSITIVITY
     Dosage: UNKNOWN
  4. SERTRALINE HYDROCHLORIDE. [Concomitant]
     Active Substance: SERTRALINE HYDROCHLORIDE
     Dosage: UNKNOWN
  5. ALPRAZOLAM. [Concomitant]
     Active Substance: ALPRAZOLAM
     Dosage: UNKNOWN
  6. NOCTAMIDE [Concomitant]
     Active Substance: LORMETAZEPAM
     Dosage: UNKNOWN
  7. NEXPLANON [Suspect]
     Active Substance: ETONOGESTREL
     Dosage: UNKNOWN
     Route: 059
     Dates: start: 20170201
  8. PROPRANOLOL HYDROCHLORIDE. [Concomitant]
     Active Substance: PROPRANOLOL HYDROCHLORIDE
     Dosage: UNKNOWN

REACTIONS (12)
  - Peroneal nerve palsy [Unknown]
  - Nervousness [Unknown]
  - Feeling abnormal [Unknown]
  - Hyperhidrosis [Unknown]
  - Eye movement disorder [Unknown]
  - Amenorrhoea [Unknown]
  - Feeling hot [Unknown]
  - Increased appetite [Unknown]
  - Insomnia [Unknown]
  - Feeling cold [Unknown]
  - Hot flush [Unknown]
  - Thirst [Unknown]

NARRATIVE: CASE EVENT DATE: 2017
